FAERS Safety Report 17361143 (Version 1)
Quarter: 2020Q1

REPORT INFORMATION
  Report Type: Spontaneous
  Country: US (occurrence: US)
  Receive Date: 20200203
  Receipt Date: 20200203
  Transmission Date: 20200409
  Serious: No
  Sender: FDA-Public Use
  Company Number: US-SA-2020SA026191

PATIENT
  Age: 12 Year
  Sex: Male

DRUGS (8)
  1. XOPENEX [Concomitant]
     Active Substance: LEVALBUTEROL HYDROCHLORIDE
  2. DUPIXENT [Suspect]
     Active Substance: DUPILUMAB
     Indication: ASTHMA
     Dosage: 200 MG, QOW
     Route: 058
     Dates: start: 20191123
  3. VITAMIN B6 [Concomitant]
     Active Substance: PYRIDOXINE HYDROCHLORIDE
  4. FOCALIN [DEXAMETHASONE;OFLOXACIN HYDROCHLORIDE] [Concomitant]
  5. SPIRIVA [Concomitant]
     Active Substance: TIOTROPIUM BROMIDE MONOHYDRATE
  6. MULTIVITAMIN [ASCORBIC ACID;BIOTIN;CALCIUM PANTOTHENATE;CYANOCOBALAMIN [Concomitant]
     Active Substance: VITAMINS
  7. TRAZODON [Concomitant]
     Active Substance: TRAZODONE HYDROCHLORIDE
  8. INTUNIV [Concomitant]
     Active Substance: GUANFACINE HYDROCHLORIDE

REACTIONS (3)
  - Fatigue [Not Recovered/Not Resolved]
  - Vomiting [Not Recovered/Not Resolved]
  - Cough [Not Recovered/Not Resolved]
